FAERS Safety Report 7946801-4 (Version None)
Quarter: 2011Q4

REPORT INFORMATION
  Report Type: 
  Country: None (occurrence: None)
  Receive Date: 20111129
  Receipt Date: 20111121
  Transmission Date: 20120403
  Serious: Yes (Hospitalization, Other)
  Sender: FDA-Public Use
  Company Number: BR-ABBOTT-11P-020-0703487-00

PATIENT
  Sex: Male
  Weight: 66 kg

DRUGS (4)
  1. HUMIRA [Suspect]
     Indication: CROHN'S DISEASE
     Dosage: NOT REPORTED
     Dates: start: 20070101
  2. UNKNOWN DRUG [Suspect]
  3. UNKNOWN MEDICATION [Concomitant]
     Indication: CROHN'S DISEASE
     Dosage: 1 INJECTION PER WEEK
     Route: 030
     Dates: start: 20080101, end: 20080101
  4. HUMIRA [Suspect]

REACTIONS (2)
  - PANCREATITIS CHRONIC [None]
  - TUBERCULOSIS [None]
